FAERS Safety Report 8615845 (Version 2)
Quarter: 2012Q4

REPORT INFORMATION
  Report Type: 
  Country: US (occurrence: US)
  Receive Date: 20120614
  Receipt Date: 20120927
  Transmission Date: 20130627
  Serious: No
  Sender: FDA-Public Use
  Company Number: US-AMGEN-USASP2012029275

PATIENT
  Age: 66 Year
  Sex: Female

DRUGS (10)
  1. PROLIA [Suspect]
     Indication: OSTEOPOROSIS POSTMENOPAUSAL
     Dosage: 60 mg, q6mo
     Dates: start: 20120214
  2. ARMOUR THYROID [Concomitant]
     Dosage: 1 mg, UNK
  3. ZANTAC [Concomitant]
     Dosage: 1 mg, UNK
  4. ZITHROMYCIN [Concomitant]
     Dosage: 3 mg, UNK
  5. TUMS                               /00193601/ [Concomitant]
     Dosage: UNK
  6. ADVAIR [Concomitant]
     Dosage: UNK
  7. JARRO DOPHILUS [Concomitant]
     Dosage: UNK
  8. MULTIVITAMIN                       /00831701/ [Concomitant]
     Dosage: UNK
  9. PREDNISONE [Concomitant]
     Dosage: 4 mg, qd
  10. PREDNISONE [Concomitant]
     Dosage: 5 mg, UNK

REACTIONS (2)
  - Vitamin D decreased [Recovered/Resolved]
  - Nasopharyngitis [Recovered/Resolved]
